FAERS Safety Report 4770630-6 (Version None)
Quarter: 2005Q3

REPORT INFORMATION
  Report Type: 
  Country: None (occurrence: None)
  Receive Date: 20050915
  Receipt Date: 20050907
  Transmission Date: 20060218
  Serious: Yes (Life-Threatening, Hospitalization)
  Sender: FDA-Public Use
  Company Number: US-JNJFOC-20050902165

PATIENT
  Sex: Female

DRUGS (2)
  1. DURAGESIC-100 [Suspect]
     Route: 062
  2. LEXAPRO [Concomitant]
     Indication: DEPRESSION
     Route: 048

REACTIONS (2)
  - CARDIOVERSION [None]
  - DRUG WITHDRAWAL CONVULSIONS [None]
